FAERS Safety Report 19795721 (Version 2)
Quarter: 2021Q3

REPORT INFORMATION
  Report Type: Spontaneous
  Country: US (occurrence: US)
  Receive Date: 20210907
  Receipt Date: 20210916
  Transmission Date: 20211014
  Serious: No
  Sender: FDA-Public Use
  Company Number: US-AMGEN-USASP2021136630

PATIENT
  Sex: Male

DRUGS (11)
  1. REFRESH [CARMELLOSE] [Concomitant]
     Active Substance: CARBOXYMETHYLCELLULOSE
  2. AZATHIOPRINE. [Concomitant]
     Active Substance: AZATHIOPRINE
  3. VITAMIN B12 [Concomitant]
     Active Substance: CYANOCOBALAMIN
  4. REFRESH OPTIVE MEGA 3 [Concomitant]
  5. PREDNISONE. [Concomitant]
     Active Substance: PREDNISONE
  6. UBRELVY [Concomitant]
     Active Substance: UBROGEPANT
  7. COLCHICINE. [Concomitant]
     Active Substance: COLCHICINE
  8. PREDNISOLONE ACETATE. [Concomitant]
     Active Substance: PREDNISOLONE ACETATE
  9. OTEZLA [Suspect]
     Active Substance: APREMILAST
     Indication: MIGRAINE WITHOUT AURA
     Dosage: 30 MILLIGRAM
     Route: 048
  10. OTEZLA [Suspect]
     Active Substance: APREMILAST
     Indication: OFF LABEL USE
  11. ASPIRIN 81 [Concomitant]
     Active Substance: ASPIRIN

REACTIONS (1)
  - Off label use [Unknown]
